FAERS Safety Report 6667784-3 (Version None)
Quarter: 2010Q1

REPORT INFORMATION
  Report Type: 
  Country: None (occurrence: None)
  Receive Date: 20100331
  Receipt Date: 20100316
  Transmission Date: 20100710
  Serious: Yes (Death)
  Sender: FDA-Public Use
  Company Number: 1-22030022

PATIENT
  Age: 61 Year
  Sex: Male

DRUGS (6)
  1. FENTANYL-25 [Suspect]
     Dosage: 37 MCG/HR, Q 3 DAYS, TRANSDERMAL
     Dates: start: 20091202
  2. EMEND [Suspect]
     Indication: PROPHYLAXIS OF NAUSEA AND VOMITING
     Dosage: ORAL
     Route: 048
     Dates: start: 20100114
  3. FLUOROUACIL [Concomitant]
  4. CISPLATIN [Concomitant]
  5. DOMPERIDONE [Concomitant]
  6. DEXAMETHASONE [Concomitant]

REACTIONS (1)
  - DRUG LEVEL INCREASED [None]
